FAERS Safety Report 25215888 (Version 1)
Quarter: 2025Q2

REPORT INFORMATION
  Report Type: Spontaneous
  Country: US (occurrence: US)
  Receive Date: 20250418
  Receipt Date: 20250418
  Transmission Date: 20250717
  Serious: Yes (Life-Threatening, Other)
  Sender: PFIZER
  Company Number: US-PFIZER INC-PV202500045177

PATIENT
  Age: 23 Year
  Sex: Male

DRUGS (1)
  1. KETAMINE HYDROCHLORIDE [Suspect]
     Active Substance: KETAMINE HYDROCHLORIDE
     Dosage: SNORTING KETAMINE TWICE DAILY FOR 6 MONTHS

REACTIONS (3)
  - Biliary tract disorder [Unknown]
  - Urinary tract obstruction [Unknown]
  - Drug abuse [Unknown]
